FAERS Safety Report 12867347 (Version 4)
Quarter: 2017Q1

REPORT INFORMATION
  Report Type: Spontaneous
  Country: CA (occurrence: CA)
  Receive Date: 20161020
  Receipt Date: 20170206
  Transmission Date: 20170428
  Serious: Yes (Other)
  Sender: FDA-Public Use
  Company Number: CA-ASTRAZENECA-2016SF07955

PATIENT
  Age: 69 Year
  Sex: Female

DRUGS (2)
  1. DILTIAZEM. [Suspect]
     Active Substance: DILTIAZEM
     Route: 065
  2. FORXIGA [Suspect]
     Active Substance: DAPAGLIFLOZIN
     Indication: TYPE 2 DIABETES MELLITUS
     Dosage: 5.0MG UNKNOWN
     Route: 048
     Dates: start: 20150915, end: 20161016

REACTIONS (3)
  - Therapy cessation [Unknown]
  - Palpitations [Not Recovered/Not Resolved]
  - Peripheral swelling [Unknown]

NARRATIVE: CASE EVENT DATE: 201609
